FAERS Safety Report 20041672 (Version 1)
Quarter: 2021Q4

REPORT INFORMATION
  Report Type: Spontaneous
  Country: FR (occurrence: FR)
  Receive Date: 20211108
  Receipt Date: 20211108
  Transmission Date: 20220303
  Serious: Yes (Other)
  Sender: FDA-Public Use
  Company Number: FR-AFSSAPS-MP20217881

PATIENT
  Sex: Male

DRUGS (3)
  1. FUROSEMIDE [Suspect]
     Active Substance: FUROSEMIDE
     Indication: Hyperkalaemia
     Dosage: UNK
     Route: 065
     Dates: start: 20210923, end: 20210923
  2. ALBUTEROL [Suspect]
     Active Substance: ALBUTEROL
     Indication: Hyperkalaemia
     Dosage: UNK
     Route: 065
     Dates: start: 20210923, end: 20210923
  3. CALCIUM GLUCONATE [Suspect]
     Active Substance: CALCIUM GLUCONATE
     Indication: Hyperkalaemia
     Dosage: UNK
     Route: 065
     Dates: start: 20210923, end: 20210923

REACTIONS (5)
  - Hypokalaemia [Recovering/Resolving]
  - Polyuria [Recovering/Resolving]
  - Medication error [Recovering/Resolving]
  - Product administration error [Recovering/Resolving]
  - Wrong patient [Recovering/Resolving]

NARRATIVE: CASE EVENT DATE: 20210923
